FAERS Safety Report 10177042 (Version 1)
Quarter: 2014Q2

REPORT INFORMATION
  Report Type: Spontaneous
  Country: DE (occurrence: DE)
  Receive Date: 20140516
  Receipt Date: 20140516
  Transmission Date: 20141212
  Serious: Yes (Life-Threatening, Hospitalization)
  Sender: FDA-Public Use
  Company Number: GXKR2014DE001901

PATIENT
  Sex: 0

DRUGS (9)
  1. RAMIPRIL [Suspect]
     Indication: HYPERTENSION
     Dosage: DAILY DOSE: 5 MG MILLGRAM(S) EVERY TOTAL
     Route: 048
     Dates: start: 20140414
  2. ROCEPHIN [Suspect]
     Indication: PANCREAS INFECTION
     Dosage: DAILY DOSE: 2 G GRAM(S) EVERY TOTAL
     Route: 042
     Dates: start: 20140414
  3. NORMOFUNDIN [Concomitant]
     Dosage: 500 ML, UNK
     Route: 041
  4. PANTOPRAZOL [Concomitant]
     Dosage: 40 MG, UNK
     Route: 041
  5. KREON 25000 [Concomitant]
     Indication: PANCREATIC INSUFFICIENCY
     Dosage: UNK UKN, UNK
     Route: 048
  6. BELOC-ZOC MITE [Concomitant]
     Indication: HYPERTENSION
     Dosage: 47.5 MG, UNK
     Route: 048
  7. SAROTEN [Concomitant]
     Indication: DEPRESSION
     Dosage: 50 MG, UNK
     Route: 048
  8. VITAMIN B KOMPLEX [Concomitant]
     Indication: POLYNEUROPATHY
     Dosage: 1 DF, QD
     Route: 048
  9. MAGNESIUM VERLA                    /00648601/ [Concomitant]
     Dosage: 2 DF, TID2SDO
     Route: 048

REACTIONS (3)
  - Angioedema [Recovering/Resolving]
  - Bradycardia [Recovering/Resolving]
  - Circulatory collapse [Recovering/Resolving]
